FAERS Safety Report 15075979 (Version 2)
Quarter: 2019Q1

REPORT INFORMATION
  Report Type: Spontaneous
  Country: US (occurrence: US)
  Receive Date: 20180627
  Receipt Date: 20190128
  Transmission Date: 20190417
  Serious: Yes (Other)
  Sender: FDA-Public Use
  Company Number: US-SA-2018SA166848

PATIENT
  Age: 55 Year
  Sex: Female
  Weight: 104.32 kg

DRUGS (9)
  1. LISINOPRIL. [Concomitant]
     Active Substance: LISINOPRIL
  2. ONDANSETRON [Concomitant]
     Active Substance: ONDANSETRON
  3. HERCEPTIN [Concomitant]
     Active Substance: TRASTUZUMAB
  4. CARBOPLATIN. [Concomitant]
     Active Substance: CARBOPLATIN
  5. DOCETAXEL. [Suspect]
     Active Substance: DOCETAXEL
     Indication: BREAST CANCER FEMALE
     Dosage: 159 MG, Q3W
     Route: 042
     Dates: start: 20140320, end: 20140320
  6. PHENERGAN [Concomitant]
     Active Substance: PROMETHAZINE HYDROCHLORIDE
  7. DOCETAXEL. [Suspect]
     Active Substance: DOCETAXEL
     Dosage: 159 MG, Q3W
     Route: 042
     Dates: start: 20140508, end: 20140508
  8. PERTUZUMAB. [Concomitant]
     Active Substance: PERTUZUMAB
  9. COMPAZINE [Concomitant]
     Active Substance: PROCHLORPERAZINE MALEATE

REACTIONS (1)
  - Alopecia [Recovering/Resolving]

NARRATIVE: CASE EVENT DATE: 201405
